FAERS Safety Report 7956449-3 (Version None)
Quarter: 2011Q4

REPORT INFORMATION
  Report Type: 
  Country: None (occurrence: None)
  Receive Date: 20111205
  Receipt Date: 20111108
  Transmission Date: 20120403
  Serious: No
  Sender: FDA-Public Use
  Company Number: US-BAYER-2011-108611

PATIENT
  Age: 21 Year
  Sex: Female

DRUGS (4)
  1. YAZ [Concomitant]
     Indication: MENORRHAGIA
  2. YAZ [Concomitant]
     Indication: CONTRACEPTION
  3. DROSPIRENONE AND ETHINYL ESTRADIOL [Suspect]
     Indication: CONTRACEPTION
  4. DROSPIRENONE AND ETHINYL ESTRADIOL [Suspect]
     Indication: MENORRHAGIA

REACTIONS (1)
  - METRORRHAGIA [None]
